FAERS Safety Report 9007787 (Version 1)
Quarter: 2013Q1

REPORT INFORMATION
  Report Type: Spontaneous
  Country: US (occurrence: US)
  Receive Date: 20130111
  Receipt Date: 20130111
  Transmission Date: 20140127
  Serious: Yes (Other)
  Sender: FDA-Public Use
  Company Number: US-009507513-0907USA03778

PATIENT
  Age: 48 Year
  Sex: Female
  Weight: 61.24 kg

DRUGS (2)
  1. SINGULAIR [Suspect]
     Indication: HYPERSENSITIVITY
     Dosage: 1 DF, HS
     Route: 048
     Dates: start: 20081119, end: 20081121
  2. SINGULAIR [Suspect]
     Indication: ASTHMA

REACTIONS (4)
  - Back pain [Unknown]
  - Flank pain [Unknown]
  - Abdominal pain upper [Unknown]
  - Headache [Unknown]
